FAERS Safety Report 23041757 (Version 2)
Quarter: 2023Q4

REPORT INFORMATION
  Report Type: Report from Study
  Country: US (occurrence: US)
  Receive Date: 20231007
  Receipt Date: 20231013
  Transmission Date: 20240109
  Serious: No
  Sender: FDA-Public Use
  Company Number: US-SANDOZ-SDZ2023US036200

PATIENT
  Sex: Female

DRUGS (18)
  1. COSENTYX [Suspect]
     Active Substance: SECUKINUMAB
     Indication: Psoriasis
     Dosage: UNK
     Route: 065
  2. COSENTYX [Suspect]
     Active Substance: SECUKINUMAB
     Indication: Palmoplantar pustulosis
  3. COSENTYX [Suspect]
     Active Substance: SECUKINUMAB
     Indication: Rash
  4. HALOBETASOL PROPIONATE [Suspect]
     Active Substance: HALOBETASOL PROPIONATE
     Indication: Psoriasis
     Dosage: UNK
     Route: 065
  5. HALOBETASOL PROPIONATE [Suspect]
     Active Substance: HALOBETASOL PROPIONATE
     Indication: Palmoplantar pustulosis
  6. HALOBETASOL PROPIONATE [Suspect]
     Active Substance: HALOBETASOL PROPIONATE
     Indication: Rash
  7. MUPIROCIN [Suspect]
     Active Substance: MUPIROCIN
     Indication: Psoriasis
     Dosage: UNK
     Route: 065
  8. MUPIROCIN [Suspect]
     Active Substance: MUPIROCIN
     Indication: Palmoplantar pustulosis
  9. MUPIROCIN [Suspect]
     Active Substance: MUPIROCIN
     Indication: Rash
  10. SULFADIAZINE [Suspect]
     Active Substance: SULFADIAZINE
     Indication: Psoriasis
     Dosage: UNK
     Route: 065
  11. SULFADIAZINE [Suspect]
     Active Substance: SULFADIAZINE
     Indication: Palmoplantar pustulosis
  12. SULFADIAZINE [Suspect]
     Active Substance: SULFADIAZINE
     Indication: Rash
  13. KETOCONAZOLE [Suspect]
     Active Substance: KETOCONAZOLE
     Indication: Psoriasis
     Dosage: UNK
     Route: 065
  14. KETOCONAZOLE [Suspect]
     Active Substance: KETOCONAZOLE
     Indication: Palmoplantar pustulosis
  15. KETOCONAZOLE [Suspect]
     Active Substance: KETOCONAZOLE
     Indication: Rash
  16. PREDNISONE [Suspect]
     Active Substance: PREDNISONE
     Indication: Psoriasis
     Dosage: UNK
     Route: 065
  17. PREDNISONE [Suspect]
     Active Substance: PREDNISONE
     Indication: Palmoplantar pustulosis
  18. PREDNISONE [Suspect]
     Active Substance: PREDNISONE
     Indication: Rash

REACTIONS (2)
  - Psoriasis [Unknown]
  - Therapeutic product effect incomplete [Unknown]
